FAERS Safety Report 20830329 (Version 1)
Quarter: 2022Q2

REPORT INFORMATION
  Report Type: Spontaneous
  Country: NL (occurrence: NL)
  Receive Date: 20220514
  Receipt Date: 20220514
  Transmission Date: 20220720
  Serious: Yes (Other)
  Sender: FDA-Public Use
  Company Number: None

PATIENT
  Age: 65 Year
  Sex: Female
  Weight: 75.3 kg

DRUGS (10)
  1. QUETIAPINE [Suspect]
     Active Substance: QUETIAPINE
     Indication: Psychotic disorder
     Dosage: 12.5MG,QUETIAPINE TABLET 12.5MG / BRAND NAME NOT SPECIFIED,THERAPY END DATE : ASKU,FREQUENCY TIME 1
     Dates: start: 20220222
  2. CHOLECALCIFEROL [Concomitant]
     Active Substance: CHOLECALCIFEROL
     Dosage: CAPSULE, 25000 UNITS,COLECALCIFEROL CAPSULE 25,000IE / BRAND NAME NOT SPECIFIED,THERAPY START DATE A
  3. ABSTRAL [Concomitant]
     Active Substance: FENTANYL CITRATE
     Dosage: TABLET, 100 UG ,FENTANYL TABLET SUBLINGUAAL 100UG / ABSTRAL TABLET SUBLINGUAAL 100MCG,?THERAPY START
  4. PERINDOPRIL [Concomitant]
     Active Substance: PERINDOPRIL
     Dosage: TABLET, 8 MG,PERINDOPRIL TABLET 8MG (ERBUMINE) / BRAND NAME NOT SPECIFIED,THERAPY START DATE AND END
  5. POLYETHYLENE GLYCOLS [Concomitant]
     Active Substance: POLYETHYLENE GLYCOLS
     Dosage: POWDER FOR DRINK,MACROGOL/SALTS PDR V BEVERAGE (MOVIC/MOLAX/LAXT/GEN) / BRAND NAME NOT SPECIFIED,THE
  6. CLOPIDOGREL [Concomitant]
     Active Substance: CLOPIDOGREL BISULFATE
     Dosage: TABLET, 75 MG,CLOPIDOGREL TABLET   75MG / BRAND NAME NOT SPECIFIED,THERAPY START DATE AND END DATE :
  7. NICOTINE [Concomitant]
     Active Substance: NICOTINE
     Dosage: PLASTER, 7 MG PER 24 HOURS,NICOTINE PLASTER 7MG/24HOURS (NICOTINEL/NICOPATCH) / NICOTINELL TTS 10 PL
  8. AMLODIPINE [Concomitant]
     Active Substance: AMLODIPINE BESYLATE
     Dosage: TABLET, 10 MG,AMLODIPINE TABLET 10MG / BRAND NAME NOT SPECIFIED,THERAPY START DATE AND END DATE : AS
  9. NADROPARIN CALCIUM [Concomitant]
     Active Substance: NADROPARIN CALCIUM
     Dosage: INJECTION FLUID, 9500 IU/ML ,NADROPARIN INJVLST 9500IE/ML / FRAXIPARIN INJVLST 2850IE/0.3ML (9500IE/
  10. ATORVASTATIN [Concomitant]
     Active Substance: ATORVASTATIN
     Dosage: TABLET, 20 MG,ATORVASTATIN TABLET 20MG / BRAND NAME NOT SPECIFIED,THERAPY START DATE AND END DATE :

REACTIONS (1)
  - Hypokalaemia [Not Recovered/Not Resolved]

NARRATIVE: CASE EVENT DATE: 20220317
